FAERS Safety Report 17014027 (Version 1)
Quarter: 2020Q3

REPORT INFORMATION
  Report Type: Report from Study
  Country: PL (occurrence: PL)
  Receive Date: 20191111
  Receipt Date: 20191111
  Transmission Date: 20201105
  Serious: Yes (Hospitalization)
  Sender: FDA-Public Use
  Company Number: PL-BIOGEN-2019BI00778188

PATIENT
  Age: 22 Year
  Sex: Female
  Weight: 71.5 kg

DRUGS (10)
  1. SODIUM CHLORIDE. [Concomitant]
     Active Substance: SODIUM CHLORIDE
     Indication: ABDOMINAL PAIN
     Dosage: 0.9%
     Route: 042
     Dates: start: 20190507, end: 20190507
  2. BUSCOPAN [Concomitant]
     Active Substance: BUTYLSCOPOLAMINE BROMIDE
     Indication: ABDOMINAL PAIN
     Dosage: 1 TAB, QD
     Route: 048
     Dates: start: 20190507, end: 20190507
  3. NO?SPA [Concomitant]
     Active Substance: DROTAVERINE HYDROCHLORIDE
     Indication: ABDOMINAL PAIN
     Dosage: 1 AMPULE, ONE TIME DOSE
     Route: 042
     Dates: start: 20190507, end: 20190507
  4. XIFAXAN [Concomitant]
     Active Substance: RIFAXIMIN
     Dosage: 2 TAB, QD
     Route: 048
     Dates: start: 20190512, end: 20190512
  5. DIROXIMEL FUMARATE. [Suspect]
     Active Substance: DIROXIMEL FUMARATE
     Indication: RELAPSING-REMITTING MULTIPLE SCLEROSIS
     Route: 048
     Dates: start: 20171120
  6. BUSCOPAN [Concomitant]
     Active Substance: BUTYLSCOPOLAMINE BROMIDE
     Dosage: 1 TAB, QD
     Route: 048
     Dates: start: 20190514, end: 20190514
  7. XIFAXAN [Concomitant]
     Active Substance: RIFAXIMIN
     Dosage: 2 TAB, BID
     Route: 048
     Dates: start: 20190508, end: 20190511
  8. XIFAXAN [Concomitant]
     Active Substance: RIFAXIMIN
     Indication: ABDOMINAL PAIN
     Dosage: 2 TAB, QD
     Route: 048
     Dates: start: 20190507, end: 20190507
  9. BUSCOPAN [Concomitant]
     Active Substance: BUTYLSCOPOLAMINE BROMIDE
     Dosage: 1 TAB, TID
     Route: 048
     Dates: start: 20190508, end: 20190513
  10. PYRALGINA [Concomitant]
     Active Substance: METAMIZOLE MAGNESIUM
     Indication: ABDOMINAL PAIN
     Route: 042
     Dates: start: 20190507, end: 20190507

REACTIONS (1)
  - Gastritis [Recovered/Resolved with Sequelae]

NARRATIVE: CASE EVENT DATE: 20190520
